FAERS Safety Report 25333844 (Version 1)
Quarter: 2025Q2

REPORT INFORMATION
  Report Type: Spontaneous
  Country: US (occurrence: US)
  Receive Date: 20250520
  Receipt Date: 20250520
  Transmission Date: 20250717
  Serious: No
  Sender: HIKMA
  Company Number: HIKM2408433

PATIENT
  Sex: Male

DRUGS (1)
  1. TESTOSTERONE CYPIONATE [Suspect]
     Active Substance: TESTOSTERONE CYPIONATE
     Indication: Product used for unknown indication
     Dosage: HALF OF A VIAL ONCE A WEEK
     Route: 065

REACTIONS (5)
  - Somnolence [Unknown]
  - Asthenia [Unknown]
  - Malaise [Unknown]
  - Product dose omission issue [Unknown]
  - Liquid product physical issue [Unknown]
